FAERS Safety Report 4740340-X (Version None)
Quarter: 2005Q3

REPORT INFORMATION
  Report Type: 
  Country: None (occurrence: None)
  Receive Date: 20050809
  Receipt Date: 20050809
  Transmission Date: 20060218
  Serious: Yes (Hospitalization)
  Sender: FDA-Public Use
  Company Number: None

PATIENT
  Age: 74 Year
  Sex: Male
  Weight: 81.7 kg

DRUGS (1)
  1. NESIRITIDE [Suspect]
     Indication: CARDIAC FAILURE
     Dosage: 2MCG/KG INTRAVENOUS
     Route: 042
     Dates: start: 20050623, end: 20050626

REACTIONS (5)
  - BLOOD CREATININE INCREASED [None]
  - BRAIN NATRIURETIC PEPTIDE ABNORMAL [None]
  - CARDIAC FAILURE CONGESTIVE [None]
  - CONDITION AGGRAVATED [None]
  - HYPERTENSIVE CRISIS [None]
